FAERS Safety Report 17213567 (Version 1)
Quarter: 2020Q1

REPORT INFORMATION
  Report Type: Spontaneous
  Country: US (occurrence: US)
  Receive Date: 20191227
  Receipt Date: 20191227
  Transmission Date: 20200409
  Serious: Yes (Other)
  Sender: FDA-Public Use
  Company Number: None

PATIENT
  Sex: Male
  Weight: 72.45 kg

DRUGS (3)
  1. ERLEADA [Concomitant]
     Active Substance: APALUTAMIDE
     Dates: start: 20191125, end: 20191205
  2. ERLEADA [Concomitant]
     Active Substance: APALUTAMIDE
     Dates: start: 20191104, end: 20191108
  3. ERLEADA [Suspect]
     Active Substance: APALUTAMIDE
     Indication: PROSTATE CANCER
     Route: 048
     Dates: start: 20191104

REACTIONS (1)
  - Diarrhoea [None]
